FAERS Safety Report 9467394 (Version 1)
Quarter: 2013Q3

REPORT INFORMATION
  Report Type: Spontaneous
  Country: US (occurrence: US)
  Receive Date: 20130821
  Receipt Date: 20130821
  Transmission Date: 20140515
  Serious: Yes (Congenital Anomaly, Other)
  Sender: FDA-Public Use
  Company Number: US-JNJFOC-20130805128

PATIENT
  Sex: 0

DRUGS (9)
  1. PHENYLEPHRINE HYDROCHLORIDE [Suspect]
     Indication: FOETAL EXPOSURE DURING PREGNANCY
     Route: 064
  2. PARACETAMOL [Suspect]
     Route: 064
  3. PARACETAMOL [Suspect]
     Indication: FOETAL EXPOSURE DURING PREGNANCY
     Route: 064
  4. PSEUDOEPHEDRINE [Suspect]
     Indication: FOETAL EXPOSURE DURING PREGNANCY
     Route: 064
  5. PSEUDOEPHEDRINE\ACETAMINOPHEN [Suspect]
     Indication: FOETAL EXPOSURE DURING PREGNANCY
     Route: 064
  6. PHENYLPROPANOLAMINE [Suspect]
     Indication: FOETAL EXPOSURE DURING PREGNANCY
     Route: 064
  7. OXYMETAZOLINE [Suspect]
     Route: 064
  8. OXYMETAZOLINE [Suspect]
     Indication: FOETAL EXPOSURE DURING PREGNANCY
     Route: 064
  9. XYLOMETAZOLINE [Suspect]
     Indication: FOETAL EXPOSURE DURING PREGNANCY
     Route: 064

REACTIONS (37)
  - Congenital anomaly [Unknown]
  - Ventricular septal defect [Unknown]
  - Anal atresia [Unknown]
  - Atrioventricular septal defect [Unknown]
  - Cardiovascular disorder [Unknown]
  - Ear disorder [Unknown]
  - Pyloric stenosis [Unknown]
  - Intestinal atresia [Unknown]
  - Intestinal stenosis [Unknown]
  - Coarctation of the aorta [Unknown]
  - Eye disorder [Unknown]
  - Talipes [Unknown]
  - Neural tube defect [Unknown]
  - Spina bifida [Unknown]
  - Anencephaly [Unknown]
  - Congenital central nervous system anomaly [Unknown]
  - Cerebral dysgenesis [Unknown]
  - Cleft palate [Unknown]
  - Cleft lip [Unknown]
  - Tracheo-oesophageal fistula [Unknown]
  - Anal stenosis [Unknown]
  - Congenital megacolon [Unknown]
  - Intestinal malrotation [Unknown]
  - Cryptorchism [Unknown]
  - Hypospadias [Unknown]
  - Renal aplasia [Unknown]
  - Renal aplasia [Unknown]
  - Congenital cystic kidney disease [Unknown]
  - Renal disorder [Unknown]
  - Renal fusion anomaly [Unknown]
  - Accessory kidney [Unknown]
  - Limb reduction defect [Unknown]
  - Craniosynostosis [Unknown]
  - Diaphragmatic hernia [Unknown]
  - Exomphalos [Unknown]
  - Inguinal hernia [Unknown]
  - Gastroschisis [Unknown]
